FAERS Safety Report 11199131 (Version 1)
Quarter: 2015Q2

REPORT INFORMATION
  Report Type: Spontaneous
  Country: US (occurrence: US)
  Receive Date: 20150618
  Receipt Date: 20150618
  Transmission Date: 20150821
  Serious: No
  Sender: FDA-Public Use
  Company Number: US-BAYER-2015-357792

PATIENT
  Sex: Female

DRUGS (11)
  1. VALIUM [Concomitant]
     Active Substance: DIAZEPAM
     Dosage: 04 MG, QD
  2. AVELOX [Suspect]
     Active Substance: MOXIFLOXACIN HYDROCHLORIDE
     Dosage: UNK
  3. SOMATROPIN [Concomitant]
     Active Substance: SOMATROPIN
     Dosage: 0.4 MG, QD
  4. VIVELLE [ETHINYLESTRADIOL,NORGESTIMATE] [Concomitant]
     Dosage: 05 MG, QD
  5. CYTOMEL [Concomitant]
     Active Substance: LIOTHYRONINE SODIUM
     Indication: HYPOTHYROIDISM
     Dosage: 05 MG, BID
     Route: 048
     Dates: start: 20150325, end: 20150407
  6. CORTEF [HYDROCORTISONE] [Concomitant]
     Dosage: 05 MG, TID
  7. PROMETRIUM [Concomitant]
     Active Substance: PROGESTERONE
     Dosage: 100 MG, UNK
  8. DDAVP [Concomitant]
     Active Substance: DESMOPRESSIN ACETATE
     Dosage: 0.1 MG, QD
  9. CABERGOLINE. [Concomitant]
     Active Substance: CABERGOLINE
     Dosage: 0.25 MG, UNK
  10. WESTHROID [Concomitant]
     Active Substance: THYROGLOBULIN
     Dosage: 32.5 MG, TID
  11. SYNTHROID [Concomitant]
     Active Substance: LEVOTHYROXINE SODIUM
     Dosage: 100 MG, QD

REACTIONS (1)
  - Drug hypersensitivity [None]
